FAERS Safety Report 7832074-X (Version None)
Quarter: 2011Q4

REPORT INFORMATION
  Report Type: 
  Country: None (occurrence: None)
  Receive Date: 20111022
  Receipt Date: 20111005
  Transmission Date: 20120403
  Serious: Yes (Hospitalization)
  Sender: FDA-Public Use
  Company Number: US-BAYER-2011-052274

PATIENT
  Age: 27 Year
  Sex: Female
  Weight: 126.8 kg

DRUGS (4)
  1. CYCLESSA [Concomitant]
  2. RANITIDINE [Concomitant]
     Dosage: 150 MG, BID
     Route: 048
  3. NAPROXEN [Concomitant]
     Dosage: 375 MG, QID
     Route: 048
  4. YASMIN [Suspect]
     Indication: CONTRACEPTION
     Dosage: UNK
     Dates: start: 20020101, end: 20030101

REACTIONS (4)
  - HYPERTENSION [None]
  - GALLBLADDER DISORDER [None]
  - PAIN [None]
  - CHOLECYSTITIS CHRONIC [None]
